FAERS Safety Report 16908725 (Version 2)
Quarter: 2019Q4

REPORT INFORMATION
  Report Type: Spontaneous
  Country: VN (occurrence: VN)
  Receive Date: 20191011
  Receipt Date: 20191014
  Transmission Date: 20200122
  Serious: Yes (Life-Threatening)
  Sender: FDA-Public Use
  Company Number: VN-PFIZER INC-2019435569

PATIENT
  Sex: Male
  Weight: 1.3 kg

DRUGS (2)
  1. VAMINOLACT [AMINO ACIDS NOS] [Concomitant]
     Dosage: UNK
  2. UNASYN [Suspect]
     Active Substance: AMPICILLIN SODIUM\SULBACTAM SODIUM
     Indication: NEONATAL RESPIRATORY DEPRESSION
     Dosage: 1/10 VIAL WITH 15ML OF DISTILLED WATER FOR INJECTION, 2X/DAY
     Route: 042
     Dates: start: 20170221, end: 20170225

REACTIONS (4)
  - Oxygen saturation abnormal [Unknown]
  - Dyspnoea [Unknown]
  - Heart rate irregular [Unknown]
  - Cyanosis [Unknown]

NARRATIVE: CASE EVENT DATE: 20170225
